FAERS Safety Report 6451510-7 (Version None)
Quarter: 2009Q4

REPORT INFORMATION
  Report Type: 
  Country: None (occurrence: None)
  Receive Date: 20091123
  Receipt Date: 20090827
  Transmission Date: 20100525
  Serious: No
  Sender: FDA-Public Use
  Company Number: US-BRISTOL-MYERS SQUIBB COMPANY-14757165

PATIENT
  Age: 47 Year
  Sex: Female

DRUGS (3)
  1. AVALIDE [Suspect]
     Indication: HYPERTENSION
     Dosage: 1 DF = 300/12.5MG
     Dates: start: 20070619
  2. NEXIUM [Concomitant]
  3. TRAVATAN [Concomitant]

REACTIONS (4)
  - LIP SWELLING [None]
  - MICTURITION FREQUENCY DECREASED [None]
  - RASH [None]
  - URTICARIA [None]
